FAERS Safety Report 4647409-9 (Version None)
Quarter: 2005Q2

REPORT INFORMATION
  Report Type: 
  Country: None (occurrence: None)
  Receive Date: 20050426
  Receipt Date: 20050408
  Transmission Date: 20051028
  Serious: Yes (Death)
  Sender: FDA-Public Use
  Company Number: 2005-00752

PATIENT

DRUGS (1)
  1. INTEGRILIN [Suspect]

REACTIONS (1)
  - DEATH [None]
